FAERS Safety Report 5198906-1 (Version None)
Quarter: 2006Q4

REPORT INFORMATION
  Report Type: 
  Country: None (occurrence: None)
  Receive Date: 20060925
  Receipt Date: 20051111
  Transmission Date: 20070319
  Serious: Yes (Other)
  Sender: FDA-Public Use
  Company Number: 2005US001651

PATIENT
  Age: 53 Year
  Sex: Female

DRUGS (7)
  1. AMBISOME [Suspect]
     Indication: DRUG USE FOR UNKNOWN INDICATION
  2. LASIX [Suspect]
     Indication: DRUG USE FOR UNKNOWN INDICATION
  3. TIPIFARNIB(TIPIFARNIB) [Suspect]
     Indication: ACUTE MYELOID LEUKAEMIA
     Dosage: 300.00 MG, BID
     Dates: start: 20051004
  4. IDARUBICIN HCL [Suspect]
     Indication: ACUTE MYELOID LEUKAEMIA
     Dosage: 12.00 MG/M2, UID/QD, IV NOS
     Route: 042
     Dates: start: 20051024
  5. CYTARABINE [Suspect]
     Indication: ACUTE MYELOID LEUKAEMIA
     Dosage: 1.50 G/M2, UID/QD, IV NOS
     Route: 042
     Dates: start: 20051004
  6. LEVAQUIN [Concomitant]
  7. PANTOPRAZOLE SODIUM [Concomitant]

REACTIONS (2)
  - HYPERBILIRUBINAEMIA [None]
  - HYPOKALAEMIA [None]
